FAERS Safety Report 4799836-7 (Version None)
Quarter: 2005Q4

REPORT INFORMATION
  Report Type: 
  Country: None (occurrence: None)
  Receive Date: 20051013
  Receipt Date: 20050927
  Transmission Date: 20060501
  Serious: Yes (Death, Hospitalization)
  Sender: FDA-Public Use
  Company Number: FR_050506445

PATIENT
  Age: 79 Year
  Sex: Male
  Weight: 70 kg

DRUGS (7)
  1. GEMZAR [Suspect]
     Indication: METASTASES TO BONE
     Dosage: 1000 MG/M2/1 WEEK
     Dates: start: 20050407, end: 20050421
  2. GEMZAR [Suspect]
     Indication: METASTASES TO LIVER
     Dosage: 1000 MG/M2/1 WEEK
     Dates: start: 20050407, end: 20050421
  3. GEMZAR [Suspect]
     Indication: PANCREATIC CARCINOMA METASTATIC
     Dosage: 1000 MG/M2/1 WEEK
     Dates: start: 20050407, end: 20050421
  4. COZAAR [Concomitant]
  5. LERCAN (LERCANIDIPINE HYDROCHLORIDE) [Concomitant]
  6. DAFLON (DIOSMIN) [Concomitant]
  7. ZOPHREN (ONDANSETRON HYDROCHLORIDE) [Concomitant]

REACTIONS (8)
  - GENERAL PHYSICAL HEALTH DETERIORATION [None]
  - MALIGNANT NEOPLASM PROGRESSION [None]
  - NAUSEA [None]
  - PAIN IN EXTREMITY [None]
  - PERIPHERAL ISCHAEMIA [None]
  - PROTHROMBIN TIME PROLONGED [None]
  - RED BLOOD CELL SEDIMENTATION RATE INCREASED [None]
  - WEIGHT DECREASED [None]
